FAERS Safety Report 5559204-7 (Version None)
Quarter: 2007Q4

REPORT INFORMATION
  Report Type: 
  Country: None (occurrence: None)
  Receive Date: 20071214
  Receipt Date: 20070921
  Transmission Date: 20080405
  Serious: No
  Sender: FDA-Public Use
  Company Number: US-ABBOTT-07P-163-0418281-00

PATIENT
  Sex: Female
  Weight: 71.732 kg

DRUGS (4)
  1. HUMIRA [Suspect]
     Indication: CROHN'S DISEASE
     Route: 058
     Dates: start: 20070915
  2. HUMIRA [Suspect]
     Route: 058
     Dates: start: 20070818, end: 20070818
  3. HUMIRA [Suspect]
     Route: 058
     Dates: start: 20070901, end: 20070901
  4. MESALAMINE [Concomitant]
     Indication: CROHN'S DISEASE

REACTIONS (1)
  - INAPPROPRIATE SCHEDULE OF DRUG ADMINISTRATION [None]
